FAERS Safety Report 7130355-9 (Version None)
Quarter: 2010Q4

REPORT INFORMATION
  Report Type: 
  Country: None (occurrence: None)
  Receive Date: 20101201
  Receipt Date: 20101126
  Transmission Date: 20110411
  Serious: Yes (Death, Other)
  Sender: FDA-Public Use
  Company Number: PHHY2010US70368

PATIENT
  Sex: Female
  Weight: 77.098 kg

DRUGS (10)
  1. SANDOSTATIN LAR [Suspect]
     Indication: POST GASTRIC SURGERY SYNDROME
     Dosage: Q 3 MONTHS
     Route: 030
     Dates: start: 20000101
  2. CODEINE [Concomitant]
     Dosage: 30 MG Q6W PM
     Route: 048
  3. TRAZODONE [Concomitant]
     Dosage: 100 MG, TID
     Route: 048
  4. TOPAMAX [Concomitant]
     Dosage: 200 MG, BID
     Route: 048
  5. HYDROCODONE [Concomitant]
     Dosage: PRN
     Route: 048
  6. ADVAIR DISKUS 100/50 [Concomitant]
  7. DEPAKOTE [Concomitant]
  8. DIVALPROEX SODIUM [Concomitant]
  9. XANAX [Concomitant]
     Dosage: 1 MG, TID
  10. RAIULLIDUE [Concomitant]
     Dosage: 150 MG, BID

REACTIONS (3)
  - DEATH [None]
  - DEPRESSION [None]
  - SOMNOLENCE [None]
